FAERS Safety Report 11022159 (Version 3)
Quarter: 2015Q3

REPORT INFORMATION
  Report Type: Spontaneous
  Country: CA (occurrence: CA)
  Receive Date: 20150413
  Receipt Date: 20150713
  Transmission Date: 20151125
  Serious: Yes (Hospitalization, Other)
  Sender: FDA-Public Use
  Company Number: CA-GLAXOSMITHKLINE INC.-A0990660A

PATIENT
  Age: 47 Year
  Sex: Female
  Weight: 79 kg

DRUGS (3)
  1. TYLENOL [Concomitant]
     Active Substance: ACETAMINOPHEN
     Indication: PRODUCT USED FOR UNKNOWN INDICATION
     Dosage: 1000 MG OF TYLENOL PRIOR TO EVERY BELIMUMAB INFUSION
  2. BENLYSTA [Suspect]
     Active Substance: BELIMUMAB
     Indication: SYSTEMIC LUPUS ERYTHEMATOSUS
     Dosage: 800 MG LOADING DOSE, THEN WEEK 2, WEEK 4 AND THEN EVERY 4 WEEKS
     Route: 042
     Dates: start: 20120810
  3. BENADRYL [Concomitant]
     Active Substance: DIPHENHYDRAMINE HYDROCHLORIDE
     Indication: PRODUCT USED FOR UNKNOWN INDICATION
     Dosage: 50 MG OF BENADRYL PRIOR TO EVERY BELIMUMAB INFUSION

REACTIONS (29)
  - Nephrolithiasis [Recovered/Resolved]
  - Gastrointestinal hypomotility [Unknown]
  - Pain [Unknown]
  - Impaired healing [Unknown]
  - Limb operation [Unknown]
  - Intestinal obstruction [Unknown]
  - Sleep terror [Recovered/Resolved]
  - Skin ulcer [Unknown]
  - Visual impairment [Unknown]
  - Hair texture abnormal [Unknown]
  - Infusion related reaction [Unknown]
  - Hernia repair [Unknown]
  - Nerve injury [Unknown]
  - Nerve compression [Unknown]
  - Vomiting [Unknown]
  - Colostomy [Unknown]
  - Dehydration [Not Recovered/Not Resolved]
  - Nightmare [Unknown]
  - Colonoscopy [Unknown]
  - Fall [Unknown]
  - Hernia [Unknown]
  - Infection [Unknown]
  - Constipation [Recovered/Resolved]
  - Movement disorder [Unknown]
  - Hypoaesthesia [Unknown]
  - Tooth extraction [Unknown]
  - Lymph gland infection [Unknown]
  - Device related infection [Recovered/Resolved]
  - Malaise [Not Recovered/Not Resolved]

NARRATIVE: CASE EVENT DATE: 201208
